FAERS Safety Report 4916851-0 (Version None)
Quarter: 2006Q1

REPORT INFORMATION
  Report Type: 
  Country: None (occurrence: None)
  Receive Date: 20060113
  Receipt Date: 20050926
  Transmission Date: 20060701
  Serious: No
  Sender: FDA-Public Use
  Company Number: 2005SP002367

PATIENT
  Age: 55 Year
  Sex: Male
  Weight: 104.3273 kg

DRUGS (5)
  1. LUNESTA [Suspect]
     Indication: INSOMNIA
     Dosage: 2 MG;HS;ORAL
     Route: 048
     Dates: start: 20050422, end: 20050501
  2. AVANDIA [Concomitant]
  3. AMARYL [Concomitant]
  4. GLYBURIDE [Concomitant]
  5. NEURONTIN [Concomitant]

REACTIONS (1)
  - OEDEMA PERIPHERAL [None]
